FAERS Safety Report 9556583 (Version 1)
Quarter: 2013Q3

REPORT INFORMATION
  Report Type: Spontaneous
  Country: US (occurrence: None)
  Receive Date: 20130906
  Receipt Date: 20130906
  Transmission Date: 20140515
  Serious: Yes (Disabling)
  Sender: FDA-Public Use
  Company Number: 163-POMAL-13060047

PATIENT
  Age: 70 Year
  Sex: Male

DRUGS (4)
  1. POMALYST [Suspect]
     Indication: PLASMA CELL MYELOMA
     Dates: start: 20130519
  2. DYAZIDE (DYAZIDE) [Concomitant]
  3. LISINOPRIL (LISINOPRIL) [Concomitant]
  4. MOTRIN (IBUPROFEN) [Concomitant]

REACTIONS (2)
  - Diarrhoea [None]
  - Neuropathy peripheral [None]
